FAERS Safety Report 7007448-X (Version None)
Quarter: 2010Q3

REPORT INFORMATION
  Report Type: 
  Country: None (occurrence: None)
  Receive Date: 20100914
  Receipt Date: 20100908
  Transmission Date: 20110219
  Serious: Yes (Hospitalization)
  Sender: FDA-Public Use
  Company Number: 2010SP048014

PATIENT
  Sex: Male

DRUGS (1)
  1. PEG-INTRON [Suspect]

REACTIONS (3)
  - DRUG ABUSER [None]
  - MENTAL DISORDER [None]
  - OESOPHAGEAL RUPTURE [None]
